FAERS Safety Report 8840614 (Version 3)
Quarter: 2013Q1

REPORT INFORMATION
  Report Type: Report from Study
  Country: BR (occurrence: BR)
  Receive Date: 20121015
  Receipt Date: 20130117
  Transmission Date: 20140127
  Serious: Yes (Death, Other)
  Sender: FDA-Public Use
  Company Number: BR-ABBOTT-12P-020-0994309-00

PATIENT
  Sex: 0

DRUGS (2)
  1. HUMIRA [Suspect]
     Indication: PATERNAL DRUGS AFFECTING FOETUS
     Route: 050
  2. HUMIRA [Suspect]
     Indication: FOETAL EXPOSURE DURING PREGNANCY

REACTIONS (4)
  - Foetal malformation [Fatal]
  - Abortion induced [Fatal]
  - Foetal exposure during pregnancy [Unknown]
  - Paternal drugs affecting foetus [Unknown]
